FAERS Safety Report 20853017 (Version 1)
Quarter: 2022Q2

REPORT INFORMATION
  Report Type: Spontaneous
  Country: US (occurrence: None)
  Receive Date: 20220519
  Receipt Date: 20220519
  Transmission Date: 20220721
  Serious: Yes (Other)
  Sender: FDA-Public Use
  Company Number: None

PATIENT
  Age: 16 Year
  Sex: Male

DRUGS (6)
  1. KOGENATE FS [Suspect]
     Active Substance: ANTIHEMOPHILIC FACTOR, HUMAN RECOMBINANT
     Indication: Factor VIII deficiency
     Route: 042
     Dates: start: 20210327
  2. MONOJECT PHARMA GRADE FLU [Concomitant]
  3. NORMAL SALINE FLUSH [Concomitant]
  4. NORMAL SALINE IV FLUSH [Concomitant]
  5. SODIUM CHLORIDE [Concomitant]
  6. SODIUM CHLORIDE FLUSH [Concomitant]

REACTIONS (1)
  - Muscle haemorrhage [None]

NARRATIVE: CASE EVENT DATE: 20220519
